FAERS Safety Report 4989934-7 (Version None)
Quarter: 2006Q2

REPORT INFORMATION
  Report Type: 
  Country: None (occurrence: None)
  Receive Date: 20060427
  Receipt Date: 20060412
  Transmission Date: 20061013
  Serious: Yes (Hospitalization)
  Sender: FDA-Public Use
  Company Number: 215072

PATIENT
  Age: 57 Year
  Sex: Female
  Weight: 64.4 kg

DRUGS (9)
  1. AVASTIN [Suspect]
     Indication: COLORECTAL CANCER METASTATIC
     Dosage: 320 MG, Q2W, INTRAVENOUS
     Route: 042
     Dates: start: 20050517
  2. IRINOTECAN HCL [Suspect]
     Indication: COLORECTAL CANCER METASTATIC
     Dosage: 300 MG, Q2W, INTRAVENOUS
     Route: 042
     Dates: start: 20050517, end: 20050517
  3. 5-FLUOROURACIL (FLUORACIL) [Suspect]
     Indication: COLORECTAL CANCER METASTATIC
     Dosage: 675 MG, Q2W, IV BOLUS; 4050 MG, Q2W, INTRAVENOUS
     Route: 042
     Dates: start: 20050517, end: 20050517
  4. LEUCOVORIN CALCIUM [Suspect]
     Indication: COLORECTAL CANCER METASTATIC
     Dosage: 50 MG, Q2W, INTRAVENOUS
     Route: 042
     Dates: start: 20050517, end: 20050517
  5. NEXIUM [Concomitant]
  6. MAGNESIUM SULFATE [Concomitant]
  7. ATROPINE [Concomitant]
  8. ANZEMET [Concomitant]
  9. DEXAMETHASONE [Concomitant]

REACTIONS (16)
  - ABDOMINAL DISCOMFORT [None]
  - ATRIAL FIBRILLATION [None]
  - CHEST DISCOMFORT [None]
  - CONSTIPATION [None]
  - DIARRHOEA [None]
  - DIZZINESS [None]
  - DYSPNOEA [None]
  - FLUID RETENTION [None]
  - HEADACHE [None]
  - HEART RATE INCREASED [None]
  - INTERSTITIAL LUNG DISEASE [None]
  - NECK PAIN [None]
  - OXYGEN SATURATION DECREASED [None]
  - PLEURAL EFFUSION [None]
  - RETCHING [None]
  - VOMITING [None]
